FAERS Safety Report 6900987-9 (Version None)
Quarter: 2010Q3

REPORT INFORMATION
  Report Type: 
  Country: None (occurrence: None)
  Receive Date: 20100803
  Receipt Date: 20100729
  Transmission Date: 20110219
  Serious: Yes (Hospitalization)
  Sender: FDA-Public Use
  Company Number: B0667597A

PATIENT
  Sex: Male

DRUGS (6)
  1. ARIXTRA [Suspect]
     Indication: DEEP VEIN THROMBOSIS
     Dosage: 2.5MG PER DAY
     Route: 058
     Dates: start: 20100101, end: 20100606
  2. LASIX [Concomitant]
     Dosage: 20MG PER DAY
     Route: 048
  3. OXYCODONE HCL [Concomitant]
     Dosage: 15MG THREE TIMES PER DAY
     Route: 048
  4. CLONAZEPAM [Concomitant]
     Dosage: 10DROP AT NIGHT
     Route: 048
  5. ACETAMINOPHEN [Concomitant]
     Dosage: 1G THREE TIMES PER DAY
     Route: 048
  6. FENTANYL CITRATE [Concomitant]
     Dosage: 50MCG EVERY 3 DAYS
     Route: 062

REACTIONS (8)
  - ANAEMIA [None]
  - GASTROINTESTINAL HAEMORRHAGE [None]
  - HAEMATURIA [None]
  - INCORRECT DRUG ADMINISTRATION DURATION [None]
  - LIVER DISORDER [None]
  - OEDEMA PERIPHERAL [None]
  - UNDERDOSE [None]
  - VOMITING [None]
